FAERS Safety Report 17786461 (Version 1)
Quarter: 2020Q2

REPORT INFORMATION
  Report Type: Spontaneous
  Country: FR (occurrence: FR)
  Receive Date: 20200514
  Receipt Date: 20200514
  Transmission Date: 20200714
  Serious: Yes (Death)
  Sender: FDA-Public Use
  Company Number: FR-ASTRAZENECA-2020SE42560

PATIENT
  Age: 78 Year
  Sex: Male
  Weight: 65 kg

DRUGS (11)
  1. TAMIFLU [Concomitant]
     Active Substance: OSELTAMIVIR PHOSPHATE
     Indication: INFLUENZA
     Dosage: UNKNOWN
     Route: 048
     Dates: start: 20200214
  2. INNOHEP [Concomitant]
     Active Substance: TINZAPARIN SODIUM
     Indication: THROMBOSIS PROPHYLAXIS
     Route: 058
     Dates: start: 20200204, end: 20200214
  3. FLUTICASONE. [Interacting]
     Active Substance: FLUTICASONE
     Indication: DYSPNOEA
     Dosage: 100UG/INHAL DAILY
     Route: 055
     Dates: start: 20200204
  4. MONTELUKAST SODIQUE [Concomitant]
     Active Substance: MONTELUKAST SODIUM
     Indication: DYSPNOEA
     Route: 048
     Dates: start: 20200204
  5. HEPARINE SODIQUE [Concomitant]
     Active Substance: HEPARIN SODIUM
     Indication: THROMBOSIS PROPHYLAXIS
     Dosage: UNKNOWN
     Route: 041
     Dates: start: 20200214, end: 20200227
  6. CARBOPLATINE [Concomitant]
     Active Substance: CARBOPLATIN
     Indication: NEOPLASM MALIGNANT
     Dosage: 3500.0MG EVERY CYCLE
     Route: 041
     Dates: start: 20200210, end: 20200210
  7. SYMBICORT [Suspect]
     Active Substance: BUDESONIDE\FORMOTEROL FUMARATE DIHYDRATE
     Indication: DYSPNOEA
     Route: 055
     Dates: start: 20200204
  8. BACTRIM [Concomitant]
     Active Substance: SULFAMETHOXAZOLE\TRIMETHOPRIM
     Indication: DYSPNOEA
     Route: 048
     Dates: start: 20200204
  9. FLUOROURACILE [Concomitant]
     Active Substance: FLUOROURACIL
     Indication: NEOPLASM MALIGNANT
     Dosage: 3500.0MG EVERY CYCLE
     Route: 041
     Dates: start: 20200210, end: 20200212
  10. DOCETAXEL. [Concomitant]
     Active Substance: DOCETAXEL
     Indication: NEOPLASM MALIGNANT
     Route: 041
     Dates: start: 20200210, end: 20200210
  11. SOLUPRED [PREDNISOLONE METASULFOBENZOATE SODIUM] [Interacting]
     Active Substance: PREDNISOLONE SODIUM METAZOATE
     Indication: DYSPNOEA
     Route: 048
     Dates: start: 20200204

REACTIONS (1)
  - Duodenal ulcer haemorrhage [Fatal]

NARRATIVE: CASE EVENT DATE: 20200218
